FAERS Safety Report 9721540 (Version 1)
Quarter: 2013Q4

REPORT INFORMATION
  Report Type: Spontaneous
  Country: IT (occurrence: IT)
  Receive Date: 20131130
  Receipt Date: 20131130
  Transmission Date: 20140711
  Serious: Yes (Hospitalization)
  Sender: FDA-Public Use
  Company Number: IT-BRISTOL-MYERS SQUIBB COMPANY-19835230

PATIENT
  Age: 74 Year
  Sex: Male

DRUGS (5)
  1. COUMADIN TABS 5 MG [Suspect]
     Indication: ATRIAL FIBRILLATION
     Dosage: 1DF=1 UNIT NOS
     Route: 048
     Dates: start: 20130101, end: 20130727
  2. CLENIL [Concomitant]
     Route: 055
  3. ATEM [Concomitant]
     Route: 055
  4. ADALAT-CRONO [Concomitant]
     Dosage: TABS
     Route: 048
  5. ALMARYTM [Concomitant]
     Dosage: 1DF=2 UNITS NOS
     Route: 048

REACTIONS (2)
  - Anaemia [Unknown]
  - Wound secretion [Unknown]
